FAERS Safety Report 15239000 (Version 1)
Quarter: 2018Q3

REPORT INFORMATION
  Report Type: Spontaneous
  Country: IT (occurrence: IT)
  Receive Date: 20180803
  Receipt Date: 20180803
  Transmission Date: 20181010
  Serious: Yes (Hospitalization, Other)
  Sender: FDA-Public Use
  Company Number: IT-SA-2017SA174926

PATIENT
  Age: 16 Year
  Sex: Female

DRUGS (15)
  1. RISPERDAL [Interacting]
     Active Substance: RISPERIDONE
     Indication: ATTENTION DEFICIT/HYPERACTIVITY DISORDER
  2. LORAZEPAM. [Interacting]
     Active Substance: LORAZEPAM
     Indication: OVERDOSE
  3. LORMETAZEPAM [Interacting]
     Active Substance: LORMETAZEPAM
     Indication: INTENTIONAL SELF-INJURY
     Dosage: 10 MG,TOTAL
     Route: 048
     Dates: start: 20170905, end: 20170905
  4. DEPAKIN [Concomitant]
     Active Substance: VALPROATE SODIUM
     Indication: ATTENTION DEFICIT/HYPERACTIVITY DISORDER
     Dosage: UNK UNK,UNK
     Route: 048
  5. DEPAKIN [Concomitant]
     Active Substance: VALPROATE SODIUM
     Indication: INTELLECTUAL DISABILITY
  6. ZOLPIDEM TARTRATE. [Suspect]
     Active Substance: ZOLPIDEM TARTRATE
     Indication: PRODUCT USED FOR UNKNOWN INDICATION
     Dosage: 2.5 MG,QD
     Route: 048
     Dates: start: 20170905, end: 20170905
  7. LORMETAZEPAM [Interacting]
     Active Substance: LORMETAZEPAM
     Indication: OVERDOSE
  8. RISPERDAL [Interacting]
     Active Substance: RISPERIDONE
     Indication: INTENTIONAL SELF-INJURY
     Dosage: 75 ML,TOTAL
     Route: 048
     Dates: start: 20170905, end: 20170905
  9. VENLAFAXINE HYDROCHLORIDE. [Interacting]
     Active Substance: VENLAFAXINE HYDROCHLORIDE
     Indication: OVERDOSE
  10. TRIAZOLAM. [Interacting]
     Active Substance: TRIAZOLAM
     Indication: OVERDOSE
  11. ALCOHOL. [Interacting]
     Active Substance: ALCOHOL
     Indication: INTENTIONAL SELF-INJURY
     Dosage: UNK UNK,TOTAL
     Route: 048
     Dates: start: 20170905, end: 20170905
  12. RISPERDAL [Interacting]
     Active Substance: RISPERIDONE
     Indication: INTELLECTUAL DISABILITY
  13. TRIAZOLAM. [Interacting]
     Active Substance: TRIAZOLAM
     Indication: INTENTIONAL SELF-INJURY
     Dosage: 2.5 MG,TOTAL
     Route: 048
     Dates: start: 20170905, end: 20170905
  14. LORAZEPAM. [Interacting]
     Active Substance: LORAZEPAM
     Indication: INTENTIONAL SELF-INJURY
     Dosage: 75 MG,TOTAL
     Route: 048
     Dates: start: 20170905, end: 20170905
  15. VENLAFAXINE HYDROCHLORIDE. [Interacting]
     Active Substance: VENLAFAXINE HYDROCHLORIDE
     Indication: INTENTIONAL SELF-INJURY
     Dosage: 150 MG,TOTAL
     Route: 048
     Dates: start: 20170905, end: 20170905

REACTIONS (14)
  - Overdose [Unknown]
  - Alcohol interaction [Unknown]
  - Intentional self-injury [Unknown]
  - Concomitant disease aggravated [Unknown]
  - Overdose [Unknown]
  - Drug interaction [Unknown]
  - Intentional product misuse [Unknown]
  - Attention deficit/hyperactivity disorder [Unknown]
  - Intellectual disability [Unknown]
  - Loss of consciousness [Unknown]
  - Contraindicated product administered [Unknown]
  - Aphasia [Unknown]
  - Sopor [Unknown]
  - Drug abuse [Unknown]

NARRATIVE: CASE EVENT DATE: 20170905
